FAERS Safety Report 20125845 (Version 1)
Quarter: 2021Q4

REPORT INFORMATION
  Report Type: Spontaneous
  Country: PL (occurrence: PL)
  Receive Date: 20211129
  Receipt Date: 20211129
  Transmission Date: 20220303
  Serious: Yes (Life-Threatening, Hospitalization)
  Sender: FDA-Public Use
  Company Number: None

PATIENT
  Age: 42 Year
  Sex: Female
  Weight: 75 kg

DRUGS (1)
  1. ALPRAZOLAM [Suspect]
     Active Substance: ALPRAZOLAM
     Dosage: 20 TABLETS
     Route: 048

REACTIONS (4)
  - Drug abuse [Unknown]
  - Altered state of consciousness [Unknown]
  - Somnolence [Unknown]
  - Suicide attempt [Unknown]
